FAERS Safety Report 13737390 (Version 1)
Quarter: 2017Q3

REPORT INFORMATION
  Report Type: Spontaneous
  Country: FR (occurrence: FR)
  Receive Date: 20170710
  Receipt Date: 20170710
  Transmission Date: 20171127
  Serious: Yes (Other)
  Sender: FDA-Public Use
  Company Number: FR-BAYER-2017-131471

PATIENT
  Age: 36 Year
  Sex: Female

DRUGS (2)
  1. IUD NOS [Concomitant]
     Active Substance: COPPER OR LEVONORGESTREL
     Dosage: UNK
  2. MIRENA [Suspect]
     Active Substance: LEVONORGESTREL
     Indication: CONTRACEPTION
     Dosage: 20 MCG/24HR, CONT
     Route: 015
     Dates: start: 2004, end: 2009

REACTIONS (5)
  - Pelvic pain [Unknown]
  - Back pain [Unknown]
  - Migraine [Unknown]
  - Menorrhagia [Unknown]
  - Acne [Unknown]

NARRATIVE: CASE EVENT DATE: 2009
